FAERS Safety Report 23875416 (Version 1)
Quarter: 2024Q2

REPORT INFORMATION
  Report Type: Spontaneous
  Country: US (occurrence: None)
  Receive Date: 20240520
  Receipt Date: 20240520
  Transmission Date: 20240716
  Serious: Yes (Hospitalization)
  Sender: FDA-Public Use
  Company Number: None

PATIENT
  Age: 72 Year
  Sex: Male
  Weight: 75.3 kg

DRUGS (1)
  1. METFORMIN HYDROCHLORIDE [Suspect]
     Active Substance: METFORMIN HYDROCHLORIDE
     Indication: Diabetes mellitus
     Dosage: 1 TAB BID PO
     Route: 048
     Dates: start: 20221130, end: 20240125

REACTIONS (9)
  - Fatigue [None]
  - Metabolic acidosis [None]
  - Hypoperfusion [None]
  - Hypophagia [None]
  - Toxicity to various agents [None]
  - Ketosis [None]
  - Blood lactic acid increased [None]
  - Acute kidney injury [None]
  - Diarrhoea [None]

NARRATIVE: CASE EVENT DATE: 20240130
